FAERS Safety Report 9275973 (Version 1)
Quarter: 2013Q2

REPORT INFORMATION
  Report Type: Spontaneous
  Country: US (occurrence: US)
  Receive Date: 20130507
  Receipt Date: 20130507
  Transmission Date: 20140414
  Serious: Yes (Hospitalization)
  Sender: FDA-Public Use
  Company Number: US-PFIZER INC-2013140232

PATIENT
  Age: 80 Year
  Sex: Female

DRUGS (4)
  1. MEDROL [Suspect]
     Dosage: 4 MG, 1X/DAY
     Route: 048
  2. PAXIL CR [Concomitant]
     Dosage: UNK
  3. NEXIUM [Concomitant]
     Dosage: UNK
  4. GLUCOPHAGE [Concomitant]
     Dosage: UNK

REACTIONS (1)
  - Malaise [Unknown]
